FAERS Safety Report 23593910 (Version 1)
Quarter: 2024Q1

REPORT INFORMATION
  Report Type: Spontaneous
  Country: GB (occurrence: GB)
  Receive Date: 20240305
  Receipt Date: 20240305
  Transmission Date: 20240410
  Serious: Yes (Other)
  Sender: FDA-Public Use
  Company Number: None

PATIENT
  Age: 66 Year
  Sex: Female
  Weight: 92 kg

DRUGS (5)
  1. SEMAGLUTIDE [Suspect]
     Active Substance: SEMAGLUTIDE
     Indication: Type 2 diabetes mellitus
     Dosage: UNK, DAILY
     Dates: start: 20240214, end: 20240219
  2. BETAMETHASONE [Concomitant]
     Active Substance: BETAMETHASONE\BETAMETHASONE DIPROPIONATE
     Indication: Otitis externa
     Dosage: 10 ML, TID(FIVE DROPS THREE TIMES A DAY LEFT EAR)
     Dates: start: 20240111, end: 20240209
  3. NEOMYCIN [Concomitant]
     Active Substance: NEOMYCIN
     Indication: Otitis externa
     Dosage: 10 ML, TID(FIVE DROPS THREE TIMES A DAY LEFT EAR)
     Dates: start: 20240111, end: 20240209
  4. NYSTATIN [Concomitant]
     Active Substance: NYSTATIN
     Indication: Oral candidiasis
     Dosage: 30 ML, QID(1ML TO BE DROPPED INTO THE MOUTH FOUR TIMES A DAY)
     Dates: start: 20240214
  5. SEMAGLUTIDE [Concomitant]
     Active Substance: SEMAGLUTIDE
     Indication: Type 2 diabetes mellitus
     Dosage: ONE DAILY TO CONTROL DIABETES
     Dates: start: 20240214, end: 20240219

REACTIONS (2)
  - Pruritus [Recovering/Resolving]
  - Gastrooesophageal reflux disease [Recovering/Resolving]

NARRATIVE: CASE EVENT DATE: 20240214
